FAERS Safety Report 10477529 (Version 1)
Quarter: 2014Q3

REPORT INFORMATION
  Report Type: Spontaneous
  Country: GB (occurrence: GB)
  Receive Date: 20140926
  Receipt Date: 20140926
  Transmission Date: 20150326
  Serious: Yes (Hospitalization)
  Sender: FDA-Public Use
  Company Number: GB-ROCHE-1012356

PATIENT
  Sex: Female

DRUGS (6)
  1. SALBUTAMOL [Concomitant]
     Active Substance: ALBUTEROL
  2. XOLAIR [Suspect]
     Active Substance: OMALIZUMAB
     Indication: ASTHMA
     Route: 065
     Dates: start: 20081108
  3. TIOTROPIUM [Concomitant]
     Active Substance: TIOTROPIUM
  4. BUDESONIDE. [Concomitant]
     Active Substance: BUDESONIDE
  5. FORMOTEROL [Concomitant]
     Active Substance: FORMOTEROL
  6. BRICANYL [Concomitant]
     Active Substance: TERBUTALINE SULFATE

REACTIONS (1)
  - Asthma [Recovering/Resolving]
